FAERS Safety Report 5078102-9 (Version None)
Quarter: 2006Q3

REPORT INFORMATION
  Report Type: 
  Country: None (occurrence: None)
  Receive Date: 20060811
  Receipt Date: 20060731
  Transmission Date: 20061208
  Serious: Yes (Other)
  Sender: FDA-Public Use
  Company Number: PHEH2006US09767

PATIENT
  Age: 58 Year
  Sex: Male

DRUGS (3)
  1. DIOVAN HCT [Suspect]
     Indication: HYPERTENSION
     Dosage: 160MG VAL/25MG HCT, QD
     Dates: start: 20051101, end: 20060101
  2. NIFEDIPINE [Concomitant]
     Indication: HYPERTENSION
     Dates: start: 20051101
  3. HYDROCHLOROTHIAZIDE [Suspect]
     Indication: HYPERTENSION
     Dosage: 25 MG, QD
     Dates: start: 20051101, end: 20060101

REACTIONS (1)
  - RENAL IMPAIRMENT [None]
